FAERS Safety Report 8599360-X (Version None)
Quarter: 2012Q3

REPORT INFORMATION
  Report Type: 
  Country: None (occurrence: None)
  Receive Date: 20120816
  Receipt Date: 20120723
  Transmission Date: 20120928
  Serious: Yes (Other)
  Sender: FDA-Public Use
  Company Number: BR-ROCHE-1074820

PATIENT
  Sex: Female

DRUGS (12)
  1. DIPYRONE INJ [Concomitant]
     Indication: PREMEDICATION
  2. MABTHERA [Suspect]
     Indication: RHEUMATOID ARTHRITIS
     Dates: start: 20111201
  3. OMEPRAZOLE [Concomitant]
  4. RISEDRONATE SODIUM [Concomitant]
  5. MABTHERA [Suspect]
     Dates: start: 20120524
  6. PREDNISONE TAB [Concomitant]
  7. CALCIUM CARBONATE [Concomitant]
  8. WARFARIN SODIUM [Concomitant]
  9. ALENDRONATE SODIUM [Concomitant]
  10. MABTHERA [Suspect]
     Route: 042
     Dates: start: 20120425
  11. PLAQUENIL [Concomitant]
  12. BENADRYL [Concomitant]
     Indication: PREMEDICATION

REACTIONS (3)
  - PLEURAL EFFUSION [None]
  - PNEUMONIA [None]
  - NAUSEA [None]
